FAERS Safety Report 25030465 (Version 2)
Quarter: 2025Q1

REPORT INFORMATION
  Report Type: Spontaneous
  Country: JP (occurrence: JP)
  Receive Date: 20250303
  Receipt Date: 20250325
  Transmission Date: 20250409
  Serious: Yes (Other)
  Sender: MERCK SHARP & DOHME LLC
  Company Number: JP-009507513-2259710

PATIENT
  Age: 38 Year
  Sex: Female
  Weight: 56.6 kg

DRUGS (8)
  1. KEYTRUDA [Suspect]
     Active Substance: PEMBROLIZUMAB
     Indication: Triple negative breast cancer
     Dosage: 200MG, ONCE EVERY 3 WEEKS
     Route: 041
     Dates: start: 20240607, end: 20250204
  2. PEMETREXED [Suspect]
     Active Substance: PEMETREXED
     Indication: Triple negative breast cancer
     Route: 065
     Dates: start: 202406
  3. PEMETREXED [Suspect]
     Active Substance: PEMETREXED
     Indication: Triple negative breast cancer
     Route: 065
     Dates: start: 202409
  4. PEMETREXED [Suspect]
     Active Substance: PEMETREXED
     Indication: Triple negative breast cancer
     Route: 065
     Dates: start: 20250204
  5. PACLITAXEL [Suspect]
     Active Substance: PACLITAXEL
     Indication: Triple negative breast cancer
     Route: 065
     Dates: start: 202406
  6. CARBOPLATIN [Suspect]
     Active Substance: CARBOPLATIN
     Indication: Triple negative breast cancer
     Route: 065
     Dates: start: 202406
  7. EPIRUBICIN [Suspect]
     Active Substance: EPIRUBICIN
     Indication: Triple negative breast cancer
     Route: 065
     Dates: start: 202409
  8. CYCLOPHOSPHAMIDE [Suspect]
     Active Substance: CYCLOPHOSPHAMIDE
     Indication: Triple negative breast cancer
     Route: 065
     Dates: start: 202409

REACTIONS (1)
  - Agranulocytosis [Recovered/Resolved]

NARRATIVE: CASE EVENT DATE: 20250225
